FAERS Safety Report 18111069 (Version 1)
Quarter: 2020Q3

REPORT INFORMATION
  Report Type: Report from Study
  Country: US (occurrence: US)
  Receive Date: 20200804
  Receipt Date: 20200804
  Transmission Date: 20201103
  Serious: No
  Sender: FDA-Public Use
  Company Number: US-KYOWAKIRIN-2020BKK012547

PATIENT

DRUGS (1)
  1. CRYSVITA [Suspect]
     Active Substance: BUROSUMAB-TWZA
     Indication: HEREDITARY HYPOPHOSPHATAEMIC RICKETS
     Dosage: UNK
     Route: 065
     Dates: start: 20200724

REACTIONS (3)
  - Injection site erythema [Not Recovered/Not Resolved]
  - Injection site pruritus [Unknown]
  - Injection site swelling [Not Recovered/Not Resolved]

NARRATIVE: CASE EVENT DATE: 202007
